FAERS Safety Report 20508543 (Version 3)
Quarter: 2022Q3

REPORT INFORMATION
  Report Type: Report from Study
  Country: CA (occurrence: CA)
  Receive Date: 20220223
  Receipt Date: 20220822
  Transmission Date: 20221027
  Serious: Yes (Death, Hospitalization)
  Sender: FDA-Public Use
  Company Number: CA-NOVARTISPH-NVSC2021CA271846

PATIENT
  Age: 71 Year
  Sex: Female

DRUGS (3)
  1. ERELZI [Suspect]
     Active Substance: ETANERCEPT-SZZS
     Indication: Rheumatoid arthritis
     Dosage: 50 MG, QW
     Route: 058
     Dates: start: 20211124
  2. METHOTREXATE [Concomitant]
     Active Substance: METHOTREXATE
     Indication: Product used for unknown indication
     Dosage: UNK, QW
     Route: 048
  3. ENBREL [Concomitant]
     Active Substance: ETANERCEPT
     Indication: Product used for unknown indication
     Dosage: UNK UNK, QW
     Route: 058

REACTIONS (8)
  - Chronic obstructive pulmonary disease [Fatal]
  - Urinary tract infection [Unknown]
  - Blood urine present [Recovered/Resolved]
  - Blood urine present [Recovered/Resolved]
  - Pain in extremity [Unknown]
  - Injection site pain [Unknown]
  - Device malfunction [Unknown]
  - Needle issue [Unknown]

NARRATIVE: CASE EVENT DATE: 20211101
